FAERS Safety Report 6768208-8 (Version None)
Quarter: 2010Q2

REPORT INFORMATION
  Report Type: 
  Country: None (occurrence: None)
  Receive Date: 20100614
  Receipt Date: 20100608
  Transmission Date: 20101027
  Serious: Yes (Death, Life-Threatening, Hospitalization, Disabling)
  Sender: FDA-Public Use
  Company Number: US-MERCK-1003USA01793

PATIENT
  Age: 52 Year
  Sex: Male
  Weight: 91 kg

DRUGS (8)
  1. JANUVIA [Suspect]
     Route: 048
     Dates: start: 20070724
  2. HYDROCHLOROTHIAZIDE [Concomitant]
     Route: 048
  3. LIPITOR [Concomitant]
     Route: 048
  4. LISINOPRIL [Concomitant]
     Route: 048
  5. ULTRAM ER [Concomitant]
     Route: 048
  6. CARAFATE [Concomitant]
     Route: 048
  7. REGLAN [Concomitant]
     Route: 048
  8. CRESTOR [Concomitant]
     Route: 048

REACTIONS (1)
  - PANCREATIC CARCINOMA METASTATIC [None]
